FAERS Safety Report 8001057 (Version 3)
Quarter: 2013Q1

REPORT INFORMATION
  Report Type: Report from Study
  Country: NL (occurrence: NL)
  Receive Date: 20110621
  Receipt Date: 20130304
  Transmission Date: 20140127
  Serious: Yes (Hospitalization)
  Sender: FDA-Public Use
  Company Number: NL-BAXTER-2011BH018945

PATIENT
  Age: 22 Year
  Sex: Male

DRUGS (3)
  1. KIOVIG 100 MG/ML SOLUTION POUR PERFUSION (20 G/200 ML) [Suspect]
     Indication: BRUTON^S AGAMMAGLOBULINAEMIA
     Route: 042
     Dates: start: 20110603
  2. KIOVIG 100 MG/ML SOLUTION POUR PERFUSION (20 G/200 ML) [Suspect]
     Route: 042
     Dates: start: 20101008
  3. KIOVIG 100 MG/ML SOLUTION POUR PERFUSION (20 G/200 ML) [Suspect]
     Route: 042

REACTIONS (4)
  - Abdominal pain [Not Recovered/Not Resolved]
  - Decreased appetite [Unknown]
  - Weight decreased [Unknown]
  - Gastrointestinal inflammation [Not Recovered/Not Resolved]
